FAERS Safety Report 16227316 (Version 1)
Quarter: 2019Q2

REPORT INFORMATION
  Report Type: Spontaneous
  Country: US (occurrence: US)
  Receive Date: 20190423
  Receipt Date: 20190423
  Transmission Date: 20190711
  Serious: No
  Sender: FDA-Public Use
  Company Number: US-CARDINAL HEALTH 414-CAHLYMPH-AE-18-44

PATIENT
  Age: 45 Year
  Sex: Female

DRUGS (1)
  1. LYMPHOSEEK [Suspect]
     Active Substance: TECHNETIUM TC-99M TILMANOCEPT
     Indication: LYMPHATIC MAPPING
     Route: 023
     Dates: start: 20180516, end: 20180516

REACTIONS (3)
  - Injection site pain [Recovered/Resolved]
  - Off label use [Recovered/Resolved]
  - Presyncope [Recovered/Resolved]

NARRATIVE: CASE EVENT DATE: 20180516
